FAERS Safety Report 4594835-2 (Version None)
Quarter: 2005Q1

REPORT INFORMATION
  Report Type: 
  Country: None (occurrence: None)
  Receive Date: 20050224
  Receipt Date: 20040928
  Transmission Date: 20050727
  Serious: Yes (Other)
  Sender: FDA-Public Use
  Company Number: GXKR2004US00716

PATIENT
  Age: 8 Year
  Sex: Male

DRUGS (2)
  1. FLUOXETINE [Suspect]
     Indication: OBSESSIVE-COMPULSIVE DISORDER
     Dosage: 1 MG, ORAL
     Route: 048
  2. FLUVOXAMINE MALEATE [Suspect]
     Dosage: 25 MG,

REACTIONS (5)
  - DYSKINESIA [None]
  - DYSPHAGIA [None]
  - EXTRAPYRAMIDAL DISORDER [None]
  - MEDICATION ERROR [None]
  - TARDIVE DYSKINESIA [None]
